FAERS Safety Report 15800380 (Version 2)
Quarter: 2019Q2

REPORT INFORMATION
  Report Type: Report from Study
  Country: US (occurrence: US)
  Receive Date: 20190108
  Receipt Date: 20190509
  Transmission Date: 20190711
  Serious: Yes (Hospitalization)
  Sender: FDA-Public Use
  Company Number: US-ACTELION-A-NJ2018-169874

PATIENT
  Age: 73 Year
  Sex: Female
  Weight: 91.61 kg

DRUGS (9)
  1. WARFARIN [Concomitant]
     Active Substance: WARFARIN
  2. SPIRONOLACTONE. [Concomitant]
     Active Substance: SPIRONOLACTONE
     Indication: FLUID RETENTION
     Dosage: 50 MG, QD
  3. OPSUMIT [Suspect]
     Active Substance: MACITENTAN
     Indication: INTERSTITIAL LUNG DISEASE
  4. ASPIRIN. [Concomitant]
     Active Substance: ASPIRIN
     Dosage: UNK
     Dates: start: 20180711
  5. ESCITALOPRAM [Concomitant]
     Active Substance: ESCITALOPRAM OXALATE
     Dosage: UNK
     Dates: start: 20180711
  6. SPIRONOLACTONE. [Concomitant]
     Active Substance: SPIRONOLACTONE
     Dosage: 75 MG, QD
  7. OPSUMIT [Suspect]
     Active Substance: MACITENTAN
     Indication: PULMONARY ARTERIAL HYPERTENSION
     Dosage: 10 MG, QD
     Route: 048
     Dates: start: 20150122
  8. CORTICOTROPIN [Concomitant]
     Active Substance: CORTICOTROPIN
     Dosage: UNK
     Dates: start: 20180711
  9. TORSEMIDE. [Concomitant]
     Active Substance: TORSEMIDE
     Dosage: UNK
     Dates: start: 20180711

REACTIONS (13)
  - Acute respiratory failure [Recovered/Resolved with Sequelae]
  - Hypoxia [Recovered/Resolved with Sequelae]
  - Sarcoidosis [Not Recovered/Not Resolved]
  - Sinus congestion [Recovered/Resolved]
  - Hospitalisation [Unknown]
  - Upper respiratory tract infection [Recovering/Resolving]
  - Influenza [Recovering/Resolving]
  - Oedema [Not Recovered/Not Resolved]
  - Weight increased [Recovering/Resolving]
  - Palpitations [Unknown]
  - Pulmonary arterial hypertension [Recovered/Resolved with Sequelae]
  - Acute sinusitis [Recovered/Resolved]
  - Fluid retention [Recovering/Resolving]

NARRATIVE: CASE EVENT DATE: 20180309
